FAERS Safety Report 6221813-X (Version None)
Quarter: 2009Q2

REPORT INFORMATION
  Report Type: 
  Country: None (occurrence: None)
  Receive Date: 20090608
  Receipt Date: 20090603
  Transmission Date: 20091009
  Serious: Yes (Other)
  Sender: FDA-Public Use
  Company Number: 2009SP009565

PATIENT
  Age: 15 Year
  Sex: Female
  Weight: 55.7924 kg

DRUGS (1)
  1. CLARITIN REDITABS [Suspect]
     Indication: SEASONAL ALLERGY
     Dosage: 10 MG; ONCE; PO
     Route: 048
     Dates: start: 20090429

REACTIONS (6)
  - COORDINATION ABNORMAL [None]
  - DISTURBANCE IN ATTENTION [None]
  - DYSTONIA [None]
  - MUSCLE SPASMS [None]
  - NERVOUSNESS [None]
  - TREMOR [None]
